FAERS Safety Report 12755154 (Version 4)
Quarter: 2017Q1

REPORT INFORMATION
  Report Type: Spontaneous
  Country: US (occurrence: US)
  Receive Date: 20160916
  Receipt Date: 20170206
  Transmission Date: 20170428
  Serious: Yes (Hospitalization, Other)
  Sender: FDA-Public Use
  Company Number: US-009507513-1609USA004760

PATIENT
  Sex: Female
  Weight: 108.84 kg

DRUGS (1)
  1. NUVARING [Suspect]
     Active Substance: ETHINYL ESTRADIOL\ETONOGESTREL
     Indication: CONTRACEPTION
     Dosage: 0.015MG 0.120MG, 1 RING ,Q4W
     Route: 067
     Dates: start: 20080220, end: 20140917

REACTIONS (17)
  - Pulmonary embolism [Unknown]
  - Infection [Unknown]
  - Vaginal discharge [Unknown]
  - Left ventricular hypertrophy [Unknown]
  - Cervical dysplasia [Unknown]
  - Lymphadenopathy [Unknown]
  - Leukocytosis [Unknown]
  - Gastrooesophageal reflux disease [Unknown]
  - High risk pregnancy [Unknown]
  - Hiatus hernia [Unknown]
  - Vulvovaginitis trichomonal [Unknown]
  - Asthenia [Unknown]
  - Genitourinary tract gonococcal infection [Unknown]
  - Dyspnoea [Unknown]
  - Threatened labour [Unknown]
  - Maternal exposure before pregnancy [Unknown]
  - Leukocytosis [Unknown]

NARRATIVE: CASE EVENT DATE: 2011
